FAERS Safety Report 6018929-X (Version None)
Quarter: 2008Q4

REPORT INFORMATION
  Report Type: 
  Country: None (occurrence: None)
  Receive Date: 20081224
  Receipt Date: 20081216
  Transmission Date: 20090506
  Serious: Yes (Other)
  Sender: FDA-Public Use
  Company Number: JP-PFIZER INC-2008156372

PATIENT

DRUGS (2)
  1. SELARA [Suspect]
     Indication: HYPERTENSION
     Dosage: UNK
     Dates: start: 20081105, end: 20081210
  2. ACINON [Concomitant]
     Dosage: UNK
     Route: 048
     Dates: start: 20081105

REACTIONS (1)
  - PHARYNGEAL OEDEMA [None]
